FAERS Safety Report 8124373-1 (Version None)
Quarter: 2012Q1

REPORT INFORMATION
  Report Type: 
  Country: None (occurrence: None)
  Receive Date: 20120209
  Receipt Date: 20120203
  Transmission Date: 20120608
  Serious: Yes (Hospitalization)
  Sender: FDA-Public Use
  Company Number: US-JNJFOC-20120201906

PATIENT
  Age: 64 Year
  Sex: Female
  Weight: 54.43 kg

DRUGS (2)
  1. ELMIRON [Suspect]
     Indication: CYSTITIS INTERSTITIAL
     Route: 048
  2. ASPIRIN [Concomitant]
     Indication: CARDIAC DISORDER
     Route: 048
     Dates: start: 20080101

REACTIONS (9)
  - DIABETES MELLITUS [None]
  - BACK DISORDER [None]
  - ROTATOR CUFF SYNDROME [None]
  - HYPERTENSION [None]
  - CYSTITIS INTERSTITIAL [None]
  - BLOOD CHOLESTEROL INCREASED [None]
  - IRRITABLE BOWEL SYNDROME [None]
  - HYPOTHYROIDISM [None]
  - FEELING ABNORMAL [None]
